FAERS Safety Report 18234706 (Version 9)
Quarter: 2024Q2

REPORT INFORMATION
  Report Type: Report from Study
  Country: US (occurrence: US)
  Receive Date: 20200905
  Receipt Date: 20240520
  Transmission Date: 20240715
  Serious: Yes (Death, Hospitalization, Other)
  Sender: FDA-Public Use
  Company Number: US-SHIRE-US202028731

PATIENT
  Sex: Female
  Weight: 66 kg

DRUGS (39)
  1. HUMAN IMMUNOGLOBULIN G [Suspect]
     Active Substance: HUMAN IMMUNOGLOBULIN G
     Indication: Immunodeficiency common variable
     Dosage: 30 GRAM, Q4WEEKS
     Route: 042
     Dates: start: 20180522
  2. HUMAN IMMUNOGLOBULIN G [Suspect]
     Active Substance: HUMAN IMMUNOGLOBULIN G
     Dosage: 35 GRAM, Q4WEEKS
     Route: 042
  3. ACETAMINOPHEN [Concomitant]
     Active Substance: ACETAMINOPHEN
     Indication: Product used for unknown indication
     Dosage: UNK
     Route: 065
  4. DIPHENHYDRAMINE [Concomitant]
     Active Substance: DIPHENHYDRAMINE
     Indication: Product used for unknown indication
     Dosage: UNK
     Route: 065
  5. HEPARIN [Concomitant]
     Active Substance: HEPARIN SODIUM
     Indication: Product used for unknown indication
     Dosage: UNK
     Route: 065
  6. LIDOCAINE [Concomitant]
     Active Substance: LIDOCAINE
     Indication: Product used for unknown indication
     Dosage: UNK
     Route: 065
  7. SODIUM CHLORIDE [Concomitant]
     Active Substance: SODIUM CHLORIDE
     Indication: Product used for unknown indication
     Dosage: UNK
     Route: 065
  8. EPINEPHRINE [Concomitant]
     Active Substance: EPINEPHRINE
     Indication: Product used for unknown indication
     Dosage: UNK
     Route: 065
  9. CEFTRIAXONE [Concomitant]
     Active Substance: CEFTRIAXONE\CEFTRIAXONE SODIUM
     Indication: Product used for unknown indication
     Dosage: UNK
     Route: 065
  10. COUMADIN [Concomitant]
     Active Substance: WARFARIN SODIUM
     Indication: Product used for unknown indication
     Dosage: UNK
     Route: 065
  11. GABAPENTIN [Concomitant]
     Active Substance: GABAPENTIN
     Indication: Product used for unknown indication
     Dosage: UNK
     Route: 065
  12. PERCOCET [Concomitant]
     Active Substance: ACETAMINOPHEN\OXYCODONE HYDROCHLORIDE
     Indication: Product used for unknown indication
     Dosage: UNK
     Route: 065
  13. TYMLOS [Concomitant]
     Active Substance: ABALOPARATIDE
     Indication: Product used for unknown indication
     Dosage: UNK
     Route: 065
  14. ZITHROMAX [Concomitant]
     Active Substance: AZITHROMYCIN DIHYDRATE
     Indication: Product used for unknown indication
     Dosage: UNK
     Route: 065
  15. CYANOCOBALAMIN [Concomitant]
     Active Substance: CYANOCOBALAMIN
     Indication: Product used for unknown indication
     Dosage: UNK
     Route: 065
  16. TRAMADOL [Concomitant]
     Active Substance: TRAMADOL\TRAMADOL HYDROCHLORIDE
     Indication: Product used for unknown indication
     Dosage: UNK
     Route: 065
  17. RIFAMPIN [Concomitant]
     Active Substance: RIFAMPIN
     Indication: Product used for unknown indication
     Dosage: UNK
     Route: 065
  18. LEVOTHYROXINE [Concomitant]
     Active Substance: LEVOTHYROXINE\LEVOTHYROXINE SODIUM
     Indication: Product used for unknown indication
     Dosage: UNK
     Route: 065
  19. ZYRTEC [Concomitant]
     Active Substance: CETIRIZINE HYDROCHLORIDE
     Indication: Product used for unknown indication
     Dosage: UNK
     Route: 065
  20. ETHAMBUTOL [Concomitant]
     Active Substance: ETHAMBUTOL HYDROCHLORIDE
     Indication: Product used for unknown indication
     Dosage: UNK
     Route: 065
  21. ASPIRIN [Concomitant]
     Active Substance: ASPIRIN
     Indication: Product used for unknown indication
     Dosage: UNK
     Route: 065
  22. SUPER B COMPL [Concomitant]
     Indication: Product used for unknown indication
     Dosage: UNK
     Route: 065
  23. POTASSIUM CHLORIDE [Concomitant]
     Active Substance: POTASSIUM CHLORIDE
     Indication: Product used for unknown indication
     Dosage: UNK
     Route: 065
  24. HYDROCHLOROTHIAZIDE [Concomitant]
     Active Substance: HYDROCHLOROTHIAZIDE
     Indication: Product used for unknown indication
     Dosage: UNK
     Route: 065
  25. RANITIDINE [Concomitant]
     Active Substance: RANITIDINE
     Indication: Product used for unknown indication
     Dosage: UNK
     Route: 065
  26. ANORO ELLIPTA [Concomitant]
     Active Substance: UMECLIDINIUM BROMIDE\VILANTEROL TRIFENATATE
     Indication: Product used for unknown indication
     Dosage: UNK
     Route: 065
  27. PROAIR HFA [Concomitant]
     Active Substance: ALBUTEROL SULFATE
     Indication: Product used for unknown indication
     Dosage: UNK
     Route: 065
  28. THIAMINE HYDROCHLORIDE [Concomitant]
     Active Substance: THIAMINE HYDROCHLORIDE
     Dosage: UNK
     Route: 065
  29. IRON [Concomitant]
     Active Substance: IRON
     Dosage: UNK
     Route: 065
  30. VITAMIN D2 [Concomitant]
     Active Substance: ERGOCALCIFEROL
     Dosage: UNK
     Route: 065
  31. VITAMIN D [Concomitant]
     Active Substance: VITAMIN D NOS
     Dosage: UNK
     Route: 065
  32. MELOXICAM [Concomitant]
     Active Substance: MELOXICAM
     Dosage: UNK
     Route: 065
  33. VITAMIN B [Concomitant]
     Active Substance: VITAMIN B
     Dosage: UNK
     Route: 065
  34. DULOXETINE HYDROCHLORIDE [Concomitant]
     Active Substance: DULOXETINE HYDROCHLORIDE
     Dosage: UNK
     Route: 065
  35. VITAMIN E [Concomitant]
     Active Substance: .ALPHA.-TOCOPHEROL
     Dosage: UNK
     Route: 065
  36. TRAMADOL HCL [Concomitant]
     Active Substance: TRAMADOL HYDROCHLORIDE
     Dosage: UNK
     Route: 065
  37. DIPHENHYDRAMINE HYDROCHLORIDE [Concomitant]
     Active Substance: DIPHENHYDRAMINE HYDROCHLORIDE
     Dosage: UNK
     Route: 065
  38. PRILOSEC [Concomitant]
     Active Substance: OMEPRAZOLE MAGNESIUM
     Dosage: UNK
     Route: 065
  39. LEVOTHYROXINE SODIUM [Concomitant]
     Active Substance: LEVOTHYROXINE SODIUM
     Dosage: UNK
     Route: 065

REACTIONS (8)
  - Death [Fatal]
  - Hip fracture [Unknown]
  - Fall [Unknown]
  - Bladder cancer [Unknown]
  - Gastric ulcer [Unknown]
  - Gastrointestinal bacterial overgrowth [Unknown]
  - Anxiety [Unknown]
  - Fatigue [Unknown]
